FAERS Safety Report 16374036 (Version 3)
Quarter: 2020Q2

REPORT INFORMATION
  Report Type: Report from Study
  Country: CA (occurrence: CA)
  Receive Date: 20190530
  Receipt Date: 20200611
  Transmission Date: 20200713
  Serious: Yes (Other)
  Sender: FDA-Public Use
  Company Number: CA-APOPHARMA-2019AP014564

PATIENT
  Sex: Male
  Weight: 59 kg

DRUGS (4)
  1. DESFERAL [Concomitant]
     Active Substance: DEFEROXAMINE MESYLATE
     Indication: CHELATION THERAPY
     Dosage: 15 G, Q.WK.
     Route: 058
  2. FERRIPROX [Suspect]
     Active Substance: DEFERIPRONE
     Indication: THALASSAEMIA BETA
     Dosage: 34 MG/KG, BID
     Route: 048
     Dates: start: 20150511
  3. FERRIPROX [Suspect]
     Active Substance: DEFERIPRONE
     Dosage: 22 MG/KG, TID
     Route: 048
     Dates: start: 2020
  4. DESFERAL [Concomitant]
     Active Substance: DEFEROXAMINE MESYLATE
     Dosage: 17 G, Q.WK.
     Route: 058

REACTIONS (2)
  - Malaise [Recovering/Resolving]
  - Liver iron concentration increased [Unknown]
